FAERS Safety Report 22035445 (Version 1)
Quarter: 2023Q1

REPORT INFORMATION
  Report Type: Spontaneous
  Country: US (occurrence: None)
  Receive Date: 20230223
  Receipt Date: 20230223
  Transmission Date: 20230418
  Serious: Yes (Life-Threatening)
  Sender: FDA-Public Use
  Company Number: None

PATIENT
  Age: 66 Year
  Sex: Female
  Weight: 61.4 kg

DRUGS (1)
  1. LUMASON [Suspect]
     Active Substance: SULFUR HEXAFLUORIDE
     Dosage: FREQUENCY : ONCE;?
     Route: 042
     Dates: start: 20230216, end: 20230216

REACTIONS (4)
  - Hypoxia [None]
  - Respiratory arrest [None]
  - Pulseless electrical activity [None]
  - Drug hypersensitivity [None]

NARRATIVE: CASE EVENT DATE: 20230216
